FAERS Safety Report 16623232 (Version 1)
Quarter: 2019Q3

REPORT INFORMATION
  Report Type: Spontaneous
  Country: PL (occurrence: PL)
  Receive Date: 20190724
  Receipt Date: 20190724
  Transmission Date: 20191004
  Serious: Yes (Life-Threatening, Hospitalization, Other)
  Sender: FDA-Public Use
  Company Number: PL-SUN PHARMACEUTICAL INDUSTRIES LTD-2019R1-213780

PATIENT
  Age: 77 Year

DRUGS (1)
  1. MORPHINE [Suspect]
     Active Substance: MORPHINE
     Indication: PAIN
     Dosage: 400 MILLIGRAM, DAILY
     Route: 048

REACTIONS (7)
  - Hypoxia [Recovering/Resolving]
  - Dehydration [Recovering/Resolving]
  - Multiple organ dysfunction syndrome [Recovering/Resolving]
  - Acidosis [Recovering/Resolving]
  - Overdose [Unknown]
  - Respiratory failure [Recovering/Resolving]
  - Product prescribing error [Unknown]
